FAERS Safety Report 7964702-2 (Version None)
Quarter: 2011Q4

REPORT INFORMATION
  Report Type: 
  Country: None (occurrence: None)
  Receive Date: 20111208
  Receipt Date: 20111202
  Transmission Date: 20120403
  Serious: Yes (Other)
  Sender: FDA-Public Use
  Company Number: US-BRACCO-007228

PATIENT
  Age: 63 Year
  Sex: Male

DRUGS (1)
  1. IOPAMIDOL [Suspect]
     Indication: COMPUTERISED TOMOGRAM
     Route: 042

REACTIONS (1)
  - PULSELESS ELECTRICAL ACTIVITY [None]
